FAERS Safety Report 9444816 (Version 1)
Quarter: 2013Q3

REPORT INFORMATION
  Report Type: Spontaneous
  Country: US (occurrence: US)
  Receive Date: 20130807
  Receipt Date: 20130807
  Transmission Date: 20140515
  Serious: Yes (Hospitalization)
  Sender: FDA-Public Use
  Company Number: US-SANOFI-AVENTIS-2013SA076826

PATIENT
  Sex: Female

DRUGS (1)
  1. UNISOM [Suspect]
     Route: 065

REACTIONS (7)
  - Paralysis [Recovered/Resolved]
  - Intentional drug misuse [Unknown]
  - Suicidal behaviour [Unknown]
  - Negative thoughts [Unknown]
  - Bipolar disorder [Unknown]
  - Impulsive behaviour [Unknown]
  - Judgement impaired [Unknown]
